FAERS Safety Report 9253393 (Version 2)
Quarter: 2013Q3

REPORT INFORMATION
  Report Type: Spontaneous
  Country: US (occurrence: US)
  Receive Date: 20130425
  Receipt Date: 20130910
  Transmission Date: 20140515
  Serious: Yes (Hospitalization, Disabling, Other)
  Sender: FDA-Public Use
  Company Number: US-ASTRAZENECA-2013SE27197

PATIENT
  Age: 66 Year
  Sex: Female
  Weight: 86.2 kg

DRUGS (18)
  1. NEXIUM [Suspect]
     Indication: GASTROOESOPHAGEAL REFLUX DISEASE
     Route: 048
     Dates: start: 20050825, end: 201012
  2. NEXIUM [Suspect]
     Indication: GASTROOESOPHAGEAL REFLUX DISEASE
     Route: 048
     Dates: start: 20050825, end: 201012
  3. NEXIUM [Suspect]
     Indication: GASTROOESOPHAGEAL REFLUX DISEASE
     Route: 048
     Dates: start: 20070805
  4. NEXIUM [Suspect]
     Indication: GASTROOESOPHAGEAL REFLUX DISEASE
     Route: 048
     Dates: start: 20070805
  5. ZANTAC [Concomitant]
  6. TUMS [Concomitant]
     Dosage: AS NEEDED
  7. HUMALOG [Concomitant]
     Indication: DIABETES MELLITUS
  8. LIPITOR [Concomitant]
     Indication: BLOOD CHOLESTEROL ABNORMAL
  9. ATACAND [Concomitant]
     Indication: BLOOD PRESSURE
  10. TOPROL [Concomitant]
     Indication: BLOOD PRESSURE
  11. PLAVIX [Concomitant]
     Indication: CARDIAC DISORDER
  12. PLAVIX [Concomitant]
     Indication: THROMBOSIS PROPHYLAXIS
  13. CYANOCOBALAMIN [Concomitant]
  14. FUROSEMIDE [Concomitant]
     Indication: DIURETIC THERAPY
     Route: 048
     Dates: start: 20120120
  15. IBUPROFEN [Concomitant]
     Indication: PAIN
     Route: 048
     Dates: start: 20120120
  16. METOPROLOL [Concomitant]
     Indication: BLOOD PRESSURE DECREASED
     Route: 048
     Dates: start: 20120120
  17. ASPIRIN [Concomitant]
     Indication: ANTICOAGULANT THERAPY
     Route: 048
     Dates: start: 20120121
  18. OMEPRAZOLE [Concomitant]
     Route: 048

REACTIONS (17)
  - Spinal fracture [Unknown]
  - Back disorder [Unknown]
  - Back pain [Unknown]
  - Road traffic accident [Unknown]
  - Cardiac disorder [Unknown]
  - Intervertebral disc displacement [Unknown]
  - Lumbar radiculopathy [Unknown]
  - Osteoporosis [Unknown]
  - Bone disorder [Unknown]
  - Osteoarthritis [Unknown]
  - Cataract [Unknown]
  - Chronic obstructive pulmonary disease [Unknown]
  - Spondylolisthesis [Unknown]
  - Intervertebral disc degeneration [Unknown]
  - Tendonitis [Unknown]
  - Spinal column stenosis [Unknown]
  - Intervertebral disc protrusion [Unknown]
